FAERS Safety Report 12570660 (Version 1)
Quarter: 2016Q3

REPORT INFORMATION
  Report Type: Spontaneous
  Country: US (occurrence: US)
  Receive Date: 20160719
  Receipt Date: 20160719
  Transmission Date: 20161109
  Serious: No
  Sender: FDA-Public Use
  Company Number: US-PFIZER INC-2016340065

PATIENT
  Age: 71 Year
  Sex: Female
  Weight: 60 kg

DRUGS (19)
  1. AVAPRO [Concomitant]
     Active Substance: IRBESARTAN
     Indication: BLOOD PRESSURE ABNORMAL
     Dosage: 300 MG, 1X/DAY
  2. CYMBALTA [Concomitant]
     Active Substance: DULOXETINE HYDROCHLORIDE
     Indication: DEPRESSION
     Dosage: 120 MG, DAILY
     Dates: start: 2002
  3. POTASSIUM CHLORIDE. [Concomitant]
     Active Substance: POTASSIUM CHLORIDE
     Indication: BLOOD POTASSIUM DECREASED
     Dosage: 8 MEQ, 1X/DAY
  4. OMEGA 3 KRILL OIL [Concomitant]
     Indication: BLOOD CHOLESTEROL ABNORMAL
     Dosage: 500 MG, 2X/DAY
     Dates: start: 2011
  5. HYDROCHLOROTHIAZIDE. [Concomitant]
     Active Substance: HYDROCHLOROTHIAZIDE
     Indication: FLUID RETENTION
     Dosage: 12.5 MG, DAILY
     Dates: start: 2006
  6. BIOTE DIM [Concomitant]
     Indication: HORMONE REPLACEMENT THERAPY
     Dosage: 150 MG, DAILY
     Dates: start: 2014
  7. VITAMIN K [Concomitant]
     Active Substance: PHYTONADIONE
     Indication: VITAMIN SUPPLEMENTATION
     Dosage: 10 MG, 1X/DAY
     Dates: start: 2014
  8. PROBIOTICS [Concomitant]
     Active Substance: PROBIOTICS NOS
     Indication: GASTROINTESTINAL DISORDER
     Dosage: 300 MG, 2X/DAY
     Dates: start: 2014
  9. METFORMIN [Concomitant]
     Active Substance: METFORMIN HYDROCHLORIDE
     Indication: DIABETES MELLITUS
     Dosage: 250 MG (500MG 1/2 TABLET), 1X/DAY
     Dates: start: 2000
  10. BIOTE IODINE PLUS [Concomitant]
     Indication: HORMONE REPLACEMENT THERAPY
     Dosage: 12.5 MG, DAILY
     Dates: start: 2014
  11. GENOTROPIN MQ [Suspect]
     Active Substance: SOMATROPIN
     Indication: HYPOPITUITARISM
     Dosage: 0.2 MG, 1X/DAY (BEFORE BEDTIME INJECTION)
     Dates: start: 2004, end: 201605
  12. ALDACTONE [Concomitant]
     Active Substance: SPIRONOLACTONE
     Indication: BLOOD TRIGLYCERIDES ABNORMAL
  13. MAGNESIUM GLYCINATE [Concomitant]
     Active Substance: MAGNESIUM GLYCINATE
     Indication: CONSTIPATION
     Dosage: 2 DF, 2X/DAY (TWO IN MORNING AND TWO AT NIGHT)
     Dates: start: 2012
  14. ARMOUR THYROID [Concomitant]
     Active Substance: THYROID, PORCINE
     Indication: THYROID DISORDER
     Dosage: 120 MG, DAILY
     Dates: start: 2011
  15. ALDACTONE [Concomitant]
     Active Substance: SPIRONOLACTONE
     Indication: BLOOD PRESSURE ABNORMAL
     Dosage: 0.5 DF (1/2 HALF TABLET), DAILY
     Dates: start: 2012
  16. VITAMIN A D [Concomitant]
     Active Substance: PETROLATUM
     Indication: VITAMIN SUPPLEMENTATION
     Dosage: 10 MG, 1X/DAY
     Dates: start: 2014
  17. B COMPLEX PLUS [Concomitant]
     Dosage: 2 DF, DAILY
     Dates: start: 2015
  18. COENZYME Q10 [Concomitant]
     Active Substance: UBIDECARENONE
     Dosage: 200 MG, DAILY
     Dates: start: 2015
  19. DHEA SR [Concomitant]
     Dosage: 20MG CAPS DAILY
     Dates: start: 2015

REACTIONS (6)
  - Balance disorder [Recovered/Resolved]
  - Insomnia [Not Recovered/Not Resolved]
  - Nausea [Recovered/Resolved]
  - Dizziness [Recovered/Resolved]
  - Asthenia [Not Recovered/Not Resolved]
  - Dehydration [Unknown]

NARRATIVE: CASE EVENT DATE: 201605
